FAERS Safety Report 21637263 (Version 1)
Quarter: 2022Q4

REPORT INFORMATION
  Report Type: Report from Study
  Country: US (occurrence: US)
  Receive Date: 20221124
  Receipt Date: 20221124
  Transmission Date: 20230112
  Serious: No
  Sender: FDA-Public Use
  Company Number: US-ABBVIE-4174356

PATIENT
  Sex: Female

DRUGS (5)
  1. HUMIRA [Suspect]
     Active Substance: ADALIMUMAB
     Indication: Rheumatoid arthritis
     Route: 058
  2. PREDNISONE [Concomitant]
     Active Substance: PREDNISONE
     Indication: Product used for unknown indication
  3. Moderna [Concomitant]
     Indication: Product used for unknown indication
     Dosage: FIRST DOSE
     Route: 030
     Dates: start: 20210317, end: 20210317
  4. Moderna [Concomitant]
     Indication: Product used for unknown indication
     Dosage: BOOSTER DOSE
     Route: 030
     Dates: start: 20211026, end: 20211026
  5. Moderna [Concomitant]
     Indication: Product used for unknown indication
     Dosage: SECOND DOSE
     Route: 030
     Dates: start: 20210419, end: 20210419

REACTIONS (1)
  - Cough [Recovering/Resolving]
